FAERS Safety Report 17435961 (Version 3)
Quarter: 2020Q1

REPORT INFORMATION
  Report Type: Spontaneous
  Country: US (occurrence: US)
  Receive Date: 20200219
  Receipt Date: 20200226
  Transmission Date: 20200409
  Serious: Yes (Other)
  Sender: FDA-Public Use
  Company Number: US-PFIZER INC-2020073445

PATIENT
  Age: 63 Year
  Sex: Male
  Weight: 81.65 kg

DRUGS (5)
  1. VICODIN [Concomitant]
     Active Substance: ACETAMINOPHEN\HYDROCODONE BITARTRATE
     Indication: SPINAL STENOSIS
     Dosage: 1 DF, 3X/DAY (7.5MG HYDROCODONE/325MG, ONE EVERY 8 HOURS)
  2. TIZANIDINE HCL [Concomitant]
     Active Substance: TIZANIDINE HYDROCHLORIDE
     Indication: MUSCLE RELAXANT THERAPY
     Dosage: 4 MG, 3X/DAY
  3. XANAX [Suspect]
     Active Substance: ALPRAZOLAM
     Indication: POLLAKIURIA
  4. XANAX [Suspect]
     Active Substance: ALPRAZOLAM
     Indication: MUSCLE RELAXANT THERAPY
     Dosage: 0.5 MG, 3X/DAY
  5. XANAX [Suspect]
     Active Substance: ALPRAZOLAM
     Indication: POOR QUALITY SLEEP

REACTIONS (4)
  - Drug effective for unapproved indication [Recovering/Resolving]
  - Hypothyroidism [Unknown]
  - Off label use [Recovering/Resolving]
  - Product use in unapproved indication [Recovering/Resolving]
